FAERS Safety Report 8240290-0 (Version None)
Quarter: 2012Q1

REPORT INFORMATION
  Report Type: 
  Country: None (occurrence: None)
  Receive Date: 20120328
  Receipt Date: 20120328
  Transmission Date: 20120608
  Serious: No
  Sender: FDA-Public Use
  Company Number: None

PATIENT
  Age: 39 Year
  Sex: Female
  Weight: 54.431 kg

DRUGS (2)
  1. TRAZODONE HCL [Suspect]
     Indication: ANXIETY
     Dosage: 100.0 MG
     Dates: start: 20030401, end: 20120327
  2. TRAZODONE HCL [Suspect]
     Indication: DEPRESSION
     Dosage: 100.0 MG
     Dates: start: 20030401, end: 20120327

REACTIONS (3)
  - HYPOAESTHESIA [None]
  - DYSKINESIA [None]
  - PARAESTHESIA [None]
